FAERS Safety Report 20448083 (Version 1)
Quarter: 2022Q1

REPORT INFORMATION
  Report Type: Spontaneous
  Country: RO (occurrence: RO)
  Receive Date: 20220209
  Receipt Date: 20220209
  Transmission Date: 20220423
  Serious: Yes (Other)
  Sender: FDA-Public Use
  Company Number: RO-SUN PHARMACEUTICAL INDUSTRIES LTD-2022RR-326065

PATIENT
  Age: 34 Year
  Sex: Female

DRUGS (4)
  1. QUETIAPINE [Suspect]
     Active Substance: QUETIAPINE
     Indication: Depression
     Dosage: 300 MG X 2/DAY
     Route: 048
     Dates: start: 20210930, end: 20220110
  2. SERTRALINE [Suspect]
     Active Substance: SERTRALINE HYDROCHLORIDE
     Indication: Depression
     Dosage: 100 MG/DAY
     Route: 048
     Dates: start: 20211021, end: 20220110
  3. LAMOTRIGINE [Suspect]
     Active Substance: LAMOTRIGINE
     Indication: Depression
     Dosage: 150 MG/DAY
     Route: 048
     Dates: start: 20210708, end: 20220110
  4. RIVOTRIL [Suspect]
     Active Substance: CLONAZEPAM
     Indication: Depression
     Dosage: 1 MG/DAY WHEN REQUIRED
     Route: 048
     Dates: start: 20210903, end: 20220110

REACTIONS (1)
  - Foetal exposure during pregnancy [Unknown]

NARRATIVE: CASE EVENT DATE: 20220110
